FAERS Safety Report 7115445-9 (Version None)
Quarter: 2010Q4

REPORT INFORMATION
  Report Type: 
  Country: None (occurrence: None)
  Receive Date: 20101122
  Receipt Date: 20101111
  Transmission Date: 20110411
  Serious: Yes (Death, Hospitalization)
  Sender: FDA-Public Use
  Company Number: SA-JNJFOC-20101104825

PATIENT
  Age: 38 Year
  Sex: Male

DRUGS (7)
  1. INFLIXIMAB, RECOMBINANT [Suspect]
     Indication: CROHN'S DISEASE
     Dosage: 3 INDUCTION DOSES OF 5 MG/KG    18 TOTAL INFUSIONS
     Route: 042
  2. AZATHIOPRINE [Suspect]
     Indication: CROHN'S DISEASE
     Route: 048
  3. DIPHENHYDRAMINE [Concomitant]
     Indication: PREMEDICATION
     Route: 042
  4. HYDROCORTISONE [Concomitant]
     Indication: PREMEDICATION
  5. PENTASA [Concomitant]
     Indication: CROHN'S DISEASE
     Route: 048
  6. PREDNISONE [Concomitant]
     Indication: CROHN'S DISEASE
     Dosage: TAPERED OVER 5 WEEKS TO 10 MG
  7. PREDNISONE [Concomitant]

REACTIONS (9)
  - BACTERIAL TEST POSITIVE [None]
  - CYTOMEGALOVIRUS COLITIS [None]
  - DEATH [None]
  - EPSTEIN-BARR VIRUS INFECTION [None]
  - HODGKIN'S DISEASE NODULAR SCLEROSIS STAGE UNSPECIFIED [None]
  - METASTASES TO BONE [None]
  - MULTI-ORGAN FAILURE [None]
  - PNEUMONIA [None]
  - SEPTIC SHOCK [None]
